FAERS Safety Report 5128492-3 (Version None)
Quarter: 2006Q4

REPORT INFORMATION
  Report Type: 
  Country: None (occurrence: None)
  Receive Date: 20061017
  Receipt Date: 20060918
  Transmission Date: 20070319
  Serious: Yes (Other)
  Sender: FDA-Public Use
  Company Number: FI-ROCHE-463883

PATIENT
  Age: 61 Year
  Sex: Male

DRUGS (3)
  1. XELODA [Suspect]
     Indication: COLORECTAL CANCER
     Dosage: TAKEN ON DAY 1-14
     Route: 042
     Dates: start: 20060718, end: 20060906
  2. AVASTIN [Suspect]
     Indication: COLORECTAL CANCER
     Dosage: REPORTED AS ^7.5MG/3WKS^
     Route: 042
     Dates: start: 20060718, end: 20060824
  3. OXALIPLATIN [Suspect]
     Indication: COLORECTAL CANCER
     Route: 042
     Dates: start: 20060718, end: 20060824

REACTIONS (1)
  - AORTIC THROMBOSIS [None]
